FAERS Safety Report 9897194 (Version 3)
Quarter: 2014Q1

REPORT INFORMATION
  Report Type: Report from Study
  Country: FR (occurrence: FR)
  Receive Date: 20140214
  Receipt Date: 20140325
  Transmission Date: 20141002
  Serious: Yes (Other)
  Sender: FDA-Public Use
  Company Number: FR-ROCHE-GNE251796

PATIENT
  Age: 42 Year
  Sex: Male

DRUGS (5)
  1. SOMATROPIN [Suspect]
     Indication: GROWTH HORMONE DEFICIENCY
     Dosage: 10 MG/2ML
     Route: 058
     Dates: start: 20060305, end: 20061013
  2. SOMATROPIN [Suspect]
     Route: 058
     Dates: start: 20061013, end: 20111207
  3. SOMATROPIN [Suspect]
     Route: 058
     Dates: start: 20111207
  4. SOMATROPIN [Suspect]
     Route: 058
  5. THYROXIN [Concomitant]
     Indication: BLOOD THYROID STIMULATING HORMONE DECREASED
     Route: 048

REACTIONS (1)
  - Pituitary tumour [Recovered/Resolved with Sequelae]
